FAERS Safety Report 5917489-9 (Version None)
Quarter: 2008Q4

REPORT INFORMATION
  Report Type: 
  Country: None (occurrence: None)
  Receive Date: 20081009
  Receipt Date: 20080924
  Transmission Date: 20090506
  Serious: Yes (Death, Other)
  Sender: FDA-Public Use
  Company Number: ENT 2004-0077

PATIENT
  Age: 76 Year
  Sex: Female

DRUGS (4)
  1. COMTAN [Suspect]
     Indication: PARKINSON'S DISEASE
     Dosage: 600 MG ORAL, 200 MG ORAL
     Route: 048
     Dates: start: 20031215, end: 20040330
  2. MODOPAR [Concomitant]
  3. VENLAFAXIN [Concomitant]
  4. CARBIDOPA AND LEVODOPA [Concomitant]

REACTIONS (6)
  - ABDOMINAL PAIN [None]
  - ANOREXIA [None]
  - COLITIS [None]
  - CONSTIPATION [None]
  - DIVERTICULUM INTESTINAL [None]
  - WEIGHT DECREASED [None]
